FAERS Safety Report 8682791 (Version 3)
Quarter: 2013Q4

REPORT INFORMATION
  Report Type: Spontaneous
  Country: US (occurrence: US)
  Receive Date: 20120725
  Receipt Date: 20131106
  Transmission Date: 20140711
  Serious: Yes (Hospitalization)
  Sender: FDA-Public Use
  Company Number: US-009507513-1207USA008088

PATIENT
  Age: 52 Year
  Sex: Male

DRUGS (4)
  1. VICTRELIS [Suspect]
     Dosage: 200 MG, UNK
     Route: 048
     Dates: start: 20120702, end: 201207
  2. RIBASPHERE [Suspect]
     Route: 048
  3. PEGASYS [Suspect]
     Route: 058
  4. NEUPOGEN [Concomitant]

REACTIONS (2)
  - Unevaluable event [Unknown]
  - White blood cell count decreased [Unknown]
